FAERS Safety Report 4607705-8 (Version None)
Quarter: 2005Q1

REPORT INFORMATION
  Report Type: 
  Country: None (occurrence: None)
  Receive Date: 20050310
  Receipt Date: 20050222
  Transmission Date: 20050727
  Serious: Yes (Other)
  Sender: FDA-Public Use
  Company Number: B0373178A

PATIENT
  Age: 35 Year
  Sex: Female

DRUGS (2)
  1. FLOLAN [Suspect]
     Indication: PULMONARY HYPERTENSION
     Dosage: 131 NG KG MIN INTRAVENOUS INFUS
  2. WARFARIN SODIUM [Suspect]
     Indication: PULMONARY HYPERTENSION

REACTIONS (1)
  - PULMONARY ALVEOLAR HAEMORRHAGE [None]
